FAERS Safety Report 19808667 (Version 1)
Quarter: 2021Q3

REPORT INFORMATION
  Report Type: Spontaneous
  Country: US (occurrence: US)
  Receive Date: 20210908
  Receipt Date: 20210908
  Transmission Date: 20211014
  Serious: No
  Sender: FDA-Public Use
  Company Number: None

PATIENT
  Sex: Female
  Weight: 75.33 kg

DRUGS (14)
  1. MULTIVITAMIN [Concomitant]
     Active Substance: VITAMINS
  2. PROCHLORPERAZINE. [Concomitant]
     Active Substance: PROCHLORPERAZINE
  3. ASPIRIN 81MG [Concomitant]
     Active Substance: ASPIRIN
  4. CALCIUM 600MG [Concomitant]
  5. HYDROCHLOROTHIAZIDE. [Concomitant]
     Active Substance: HYDROCHLOROTHIAZIDE
  6. CARVEDILOL. [Concomitant]
     Active Substance: CARVEDILOL
  7. DIPHENOXYLATE? ATROPINE [Concomitant]
  8. LETROZOLE. [Concomitant]
     Active Substance: LETROZOLE
  9. ONDANSETRON [Concomitant]
     Active Substance: ONDANSETRON
  10. VITAMIN D3 [Concomitant]
     Active Substance: CHOLECALCIFEROL
  11. CAPECITABINE. [Suspect]
     Active Substance: CAPECITABINE
     Indication: BREAST CANCER
     Dosage: ?          OTHER FREQUENCY:BID FOR 14/21 DAYS;?
     Route: 048
     Dates: start: 20210319
  12. POTASSIUM [Concomitant]
     Active Substance: POTASSIUM
  13. TUKYSA [Concomitant]
     Active Substance: TUCATINIB
  14. LEVOTHYROXINE. [Concomitant]
     Active Substance: LEVOTHYROXINE

REACTIONS (2)
  - Nail infection [None]
  - Onychomadesis [None]
